FAERS Safety Report 13779698 (Version 3)
Quarter: 2017Q4

REPORT INFORMATION
  Report Type: Spontaneous
  Country: JP (occurrence: JP)
  Receive Date: 20170722
  Receipt Date: 20171226
  Transmission Date: 20180320
  Serious: Yes (Other)
  Sender: FDA-Public Use
  Company Number: JP-009507513-1707JPN000805J

PATIENT
  Age: 66 Year
  Sex: Male
  Weight: 56 kg

DRUGS (10)
  1. MIYA-BM [Concomitant]
     Active Substance: CLOSTRIDIUM BUTYRICUM SPORES STRAIN M-55
     Indication: GASTROINTESTINAL DISORDER THERAPY
     Dosage: 60 MG, UNK
     Route: 048
     Dates: start: 20170528, end: 20170927
  2. ALLELOCK [Concomitant]
     Active Substance: OLOPATADINE HYDROCHLORIDE
     Indication: NEURODERMATITIS
     Dosage: 20 MG, UNK
     Route: 048
     Dates: start: 20170502, end: 20170727
  3. FOLIAMIN [Suspect]
     Active Substance: FOLIC ACID
     Indication: FOLATE DEFICIENCY
     Dosage: 5 MG, UNK
     Route: 048
     Dates: start: 20170621, end: 20170802
  4. MAGNESIUM OXIDE. [Concomitant]
     Active Substance: MAGNESIUM OXIDE
     Indication: BOWEL MOVEMENT IRREGULARITY
     Dosage: 1980 MG, UNK
     Route: 048
     Dates: start: 20170502, end: 20170726
  5. ALESION [Concomitant]
     Active Substance: EPINASTINE HYDROCHLORIDE
     Indication: NEURODERMATITIS
     Dosage: 20 MG, UNK
     Route: 048
     Dates: start: 20170601, end: 20170927
  6. CUBICIN [Suspect]
     Active Substance: DAPTOMYCIN
     Indication: OSTEOMYELITIS
     Dosage: 240 MG, UNK
     Route: 041
     Dates: start: 20170627, end: 20170719
  7. ALDACTONE A [Suspect]
     Active Substance: SPIRONOLACTONE
     Indication: ASCITES
     Dosage: 50 MG, UNK
     Route: 048
     Dates: start: 20170527, end: 20170715
  8. VITAMEDIN [Suspect]
     Active Substance: CYANOCOBALAMIN\PYRIDOXINE HYDROCHLORIDE\THIAMINE
     Indication: VITAMIN B12 DEFICIENCY
     Dosage: 2 DF, UNK
     Route: 048
     Dates: start: 20170621, end: 20170927
  9. CUBICIN [Suspect]
     Active Substance: DAPTOMYCIN
     Dosage: 240 MG, UNK
     Route: 041
     Dates: start: 20170729, end: 20170821
  10. NEXIUM [Concomitant]
     Active Substance: ESOMEPRAZOLE MAGNESIUM
     Indication: PROPHYLAXIS
     Dosage: 20 MG, UNK
     Route: 048
     Dates: start: 20170502, end: 20170929

REACTIONS (4)
  - Hypercalcaemia [Recovered/Resolved]
  - Renal impairment [Recovering/Resolving]
  - Eosinophil percentage increased [Not Recovered/Not Resolved]
  - Platelet count decreased [Recovered/Resolved]

NARRATIVE: CASE EVENT DATE: 20170703
